FAERS Safety Report 12823534 (Version 3)
Quarter: 2016Q4

REPORT INFORMATION
  Report Type: Spontaneous
  Country: US (occurrence: US)
  Receive Date: 20161006
  Receipt Date: 20161103
  Transmission Date: 20170207
  Serious: Yes (Hospitalization)
  Sender: FDA-Public Use
  Company Number: US-BAYER-2016-193122

PATIENT
  Age: 41 Year
  Sex: Male
  Weight: 74.83 kg

DRUGS (15)
  1. TRAZODONE [Concomitant]
     Active Substance: TRAZODONE HYDROCHLORIDE
  2. ESOMEPRAZOLE [Concomitant]
     Active Substance: ESOMEPRAZOLE
  3. MINOXIDIL. [Concomitant]
     Active Substance: MINOXIDIL
  4. GADAVIST [Suspect]
     Active Substance: GADOBUTROL
     Indication: NUCLEAR MAGNETIC RESONANCE IMAGING
     Dosage: 8 MMOL/KG, ONCE
     Route: 042
     Dates: start: 20161004, end: 20161004
  5. CHORIONIC GONADOTROPIN [Concomitant]
     Active Substance: CHORIOGONADOTROPIN ALFA
  6. VITAMIN D [Concomitant]
     Active Substance: CHOLECALCIFEROL
  7. OXYCODONE [Concomitant]
     Active Substance: OXYCODONE
  8. AMBENE [PHENYLBUTAZONE] [Concomitant]
  9. LEVOTHYROXINE. [Concomitant]
     Active Substance: LEVOTHYROXINE
  10. POLYETHYLENE GLYCOL [Concomitant]
     Active Substance: POLYETHYLENE GLYCOLS
  11. RIFAXIMIN [Concomitant]
     Active Substance: RIFAXIMIN
  12. GADAVIST [Suspect]
     Active Substance: GADOBUTROL
     Indication: HEPATIC CIRRHOSIS
  13. ACETAMINOPHEN. [Concomitant]
     Active Substance: ACETAMINOPHEN
  14. NICOTINE. [Concomitant]
     Active Substance: NICOTINE
  15. DEFERASIROX [Suspect]
     Active Substance: DEFERASIROX

REACTIONS (5)
  - Dyspnoea [None]
  - Anaphylactic reaction [Unknown]
  - Pallor [None]
  - Blood pressure abnormal [None]
  - Product use issue [None]

NARRATIVE: CASE EVENT DATE: 20161004
